FAERS Safety Report 9444993 (Version 2)
Quarter: 2013Q4

REPORT INFORMATION
  Report Type: Spontaneous
  Country: JP (occurrence: JP)
  Receive Date: 20130807
  Receipt Date: 20131030
  Transmission Date: 20140711
  Serious: Yes (Other)
  Sender: FDA-Public Use
  Company Number: JP-SANOFI-AVENTIS-2013SA076913

PATIENT
  Age: 76 Year
  Sex: Male

DRUGS (5)
  1. ELPLAT [Suspect]
     Indication: COLON CANCER
     Route: 041
     Dates: start: 2012
  2. ELPLAT [Suspect]
     Indication: COLON CANCER
     Route: 041
     Dates: start: 20121005
  3. CALCIUM LEVOFOLINATE [Concomitant]
     Dates: start: 2012
  4. 5-FU [Concomitant]
     Dates: start: 2012
  5. AVASTIN [Concomitant]

REACTIONS (3)
  - Pulmonary infarction [Recovering/Resolving]
  - Pruritus [Unknown]
  - Rash [Unknown]
